FAERS Safety Report 10204475 (Version 1)
Quarter: 2014Q2

REPORT INFORMATION
  Report Type: Spontaneous
  Country: US (occurrence: US)
  Receive Date: 20140529
  Receipt Date: 20140529
  Transmission Date: 20141212
  Serious: No
  Sender: FDA-Public Use
  Company Number: US-SANOFI-AVENTIS-2013SA063293

PATIENT
  Age: 57 Year
  Sex: Male
  Weight: 99.79 kg

DRUGS (1)
  1. LANTUS [Suspect]
     Dosage: PT HAD BEEN ON LANTUS FOR APPROX 1 YEAR
     Route: 051

REACTIONS (2)
  - Pain [Unknown]
  - Muscle spasms [Unknown]
